FAERS Safety Report 8941561 (Version 1)
Quarter: 2012Q4

REPORT INFORMATION
  Report Type: 
  Country: GB (occurrence: GB)
  Receive Date: 20121203
  Receipt Date: 20121203
  Transmission Date: 20130627
  Serious: Yes (Disabling, Other)
  Sender: FDA-Public Use
  Company Number: GB-009507513-1211GBR011618

PATIENT
  Sex: Male

DRUGS (1)
  1. PROPECIA 1MG FILM-COATED TABLET [Suspect]
     Dosage: UNK
     Route: 048
     Dates: start: 2008, end: 2008

REACTIONS (3)
  - Suicide attempt [Unknown]
  - Disability [Unknown]
  - Erectile dysfunction [Not Recovered/Not Resolved]
